FAERS Safety Report 6846787-X (Version None)
Quarter: 2010Q3

REPORT INFORMATION
  Report Type: 
  Country: None (occurrence: None)
  Receive Date: 20100715
  Receipt Date: 20070921
  Transmission Date: 20110219
  Serious: No
  Sender: FDA-Public Use
  Company Number: US-PFIZER INC-2007080418

PATIENT
  Sex: Male
  Weight: 163.18 kg

DRUGS (12)
  1. CHANTIX [Suspect]
     Indication: SMOKING CESSATION THERAPY
     Route: 048
     Dates: start: 20070918
  2. MONTELUKAST SODIUM [Suspect]
     Indication: BRONCHITIS
     Route: 048
     Dates: start: 20070901
  3. INSULIN [Concomitant]
  4. REGULAR INSULIN [Concomitant]
  5. DEMADEX [Concomitant]
  6. SPIRONOLACTONE [Concomitant]
  7. VERELAN [Concomitant]
  8. GLUCOPHAGE [Concomitant]
  9. AMARYL [Concomitant]
  10. ISOSORBIDE [Concomitant]
  11. DUONEB [Concomitant]
  12. LEVAQUIN [Concomitant]
     Dates: start: 20070901

REACTIONS (2)
  - ABDOMINAL DISTENSION [None]
  - NAUSEA [None]
